FAERS Safety Report 9458091 (Version 1)
Quarter: 2013Q3

REPORT INFORMATION
  Report Type: Spontaneous
  Country: GB (occurrence: None)
  Receive Date: 20130812
  Receipt Date: 20130812
  Transmission Date: 20140515
  Serious: Yes (Other)
  Sender: FDA-Public Use
  Company Number: AUR-APL-2013-06389

PATIENT
  Age: 75 Year
  Sex: Female
  Weight: 38 kg

DRUGS (3)
  1. AMLODIPINE (AMLODIPINE) [Suspect]
     Indication: PRODUCT USED FOR UNKNOWN INDICATION
     Route: 048
     Dates: start: 20130715
  2. LISINOPRIL (LISINOPRIL) [Suspect]
     Dates: start: 20130715
  3. LERCANIDIPINE HYDROCHLORIDE [Suspect]
     Route: 048
     Dates: start: 20130715

REACTIONS (2)
  - Oedema peripheral [None]
  - Hyponatraemia [None]
